FAERS Safety Report 4650967-1 (Version None)
Quarter: 2005Q2

REPORT INFORMATION
  Report Type: 
  Country: None (occurrence: None)
  Receive Date: 20050429
  Receipt Date: 20050420
  Transmission Date: 20051028
  Serious: Yes (Other)
  Sender: FDA-Public Use
  Company Number: HQWYE172920APR05

PATIENT
  Age: 62 Year
  Sex: Male

DRUGS (1)
  1. AMIODARONE HCL [Suspect]
     Dosage: 100 MG 1X PER 1 DAY
     Route: 048

REACTIONS (1)
  - ANGINA PECTORIS [None]
